FAERS Safety Report 10178132 (Version 1)
Quarter: 2014Q2

REPORT INFORMATION
  Report Type: Spontaneous
  Country: CA (occurrence: CA)
  Receive Date: 20140519
  Receipt Date: 20140519
  Transmission Date: 20141212
  Serious: Yes (Other)
  Sender: FDA-Public Use
  Company Number: CA-009507513-1405CAN008075

PATIENT
  Age: 10 Year
  Sex: Male
  Weight: 39 kg

DRUGS (2)
  1. ZENHALE [Suspect]
     Dosage: 2 DF, BID
     Route: 058
  2. BRICANYL TURBUHALER [Concomitant]

REACTIONS (3)
  - Adrenal insufficiency [Recovered/Resolved]
  - Blood cortisol decreased [Recovered/Resolved]
  - Fatigue [Recovered/Resolved]
